FAERS Safety Report 12342754 (Version 1)
Quarter: 2016Q2

REPORT INFORMATION
  Report Type: Spontaneous
  Country: TN (occurrence: TN)
  Receive Date: 20160506
  Receipt Date: 20160506
  Transmission Date: 20160815
  Serious: Yes (Hospitalization)
  Sender: FDA-Public Use
  Company Number: TN-VALIDUS PHARMACEUTICALS LLC-TN-2016VAL001489

PATIENT
  Age: 3 Month
  Sex: Female

DRUGS (4)
  1. AMIKACIN SULFATE. [Suspect]
     Active Substance: AMIKACIN SULFATE
     Indication: SEPSIS
     Dosage: UNK
  2. CEFOTAXIME SODIUM [Suspect]
     Active Substance: CEFOTAXIME SODIUM
     Indication: SEPSIS
     Dosage: UNK
  3. IMIPENEM [Suspect]
     Active Substance: IMIPENEM
     Indication: SEPSIS
     Dosage: UNK
  4. GENTAMICIN SULFATE. [Suspect]
     Active Substance: GENTAMICIN SULFATE
     Indication: SEPSIS
     Dosage: UNK

REACTIONS (4)
  - Fungaemia [Recovering/Resolving]
  - Seizure [Recovering/Resolving]
  - Pyrexia [Recovering/Resolving]
  - Blood culture positive [Recovering/Resolving]
